FAERS Safety Report 9602758 (Version 1)
Quarter: 2013Q4

REPORT INFORMATION
  Report Type: Spontaneous
  Country: FR (occurrence: None)
  Receive Date: 20131003
  Receipt Date: 20131003
  Transmission Date: 20140711
  Serious: Yes (Hospitalization)
  Sender: FDA-Public Use
  Company Number: 1910103

PATIENT
  Age: 43 Year
  Sex: Female

DRUGS (4)
  1. CARBOPLATIN [Suspect]
     Indication: OVARIAN CANCER
     Route: 041
     Dates: start: 20110801, end: 20110801
  2. (CAELYX) [Concomitant]
  3. (METHYLPRENISOLONE MERCK) [Concomitant]
  4. (ZOPHREN /00955301/) [Concomitant]

REACTIONS (2)
  - Hypersensitivity [None]
  - Oral pain [None]
